FAERS Safety Report 5908435-2 (Version None)
Quarter: 2008Q3

REPORT INFORMATION
  Report Type: 
  Country: None (occurrence: None)
  Receive Date: 20080930
  Receipt Date: 20080918
  Transmission Date: 20090109
  Serious: Yes (Hospitalization)
  Sender: FDA-Public Use
  Company Number: 1-16650001/MED-08175

PATIENT
  Sex: Female
  Weight: 90.7194 kg

DRUGS (6)
  1. QUALAQUIN [Suspect]
     Indication: MUSCLE SPASMS
     Dosage: 324 MG DAILY AT BEDTIME, ORAL
     Route: 048
     Dates: start: 20050101
  2. VERELAN (VERAPAMIL) [Concomitant]
  3. LISINOPRIL [Concomitant]
  4. PROBENECID PLUS COLCHICINE [Concomitant]
  5. THEO-DUR [Concomitant]
  6. SIMVASTATIN [Concomitant]

REACTIONS (8)
  - ABNORMAL BEHAVIOUR [None]
  - COLD SWEAT [None]
  - FATIGUE [None]
  - FEELING COLD [None]
  - FEMALE GENITAL TRACT FISTULA [None]
  - HAEMORRHAGE [None]
  - PALLOR [None]
  - TREMOR [None]
